FAERS Safety Report 19985718 (Version 4)
Quarter: 2021Q4

REPORT INFORMATION
  Report Type: Report from Study
  Country: CH (occurrence: CH)
  Receive Date: 20211021
  Receipt Date: 20211206
  Transmission Date: 20220303
  Serious: Yes (Hospitalization)
  Sender: FDA-Public Use
  Company Number: CH-AMGEN-CHECT2021156614

PATIENT
  Age: 75 Year
  Sex: Male
  Weight: 58.8 kg

DRUGS (3)
  1. AMG-510 [Suspect]
     Active Substance: AMG-510
     Indication: Non-small cell lung cancer stage IV
     Dosage: 960 MILLIGRAM
     Route: 048
     Dates: start: 20210721
  2. AMG-510 [Suspect]
     Active Substance: AMG-510
     Indication: K-ras gene mutation
  3. KEFZOL [Concomitant]
     Active Substance: CEFAZOLIN SODIUM
     Dosage: 2000 MILLIGRAM
     Route: 042
     Dates: start: 20211014, end: 20211020

REACTIONS (1)
  - Pulmonary sepsis [Not Recovered/Not Resolved]

NARRATIVE: CASE EVENT DATE: 20211008
